FAERS Safety Report 15433716 (Version 1)
Quarter: 2018Q3

REPORT INFORMATION
  Report Type: Report from Study
  Country: KR (occurrence: KR)
  Receive Date: 20180927
  Receipt Date: 20180927
  Transmission Date: 20181010
  Serious: Yes (Hospitalization)
  Sender: FDA-Public Use
  Company Number: KR-ASTRAZENECA-2018SF18076

PATIENT
  Age: 50 Year
  Sex: Female
  Weight: 43 kg

DRUGS (13)
  1. TAMOXIFEN CITRATE. [Concomitant]
     Active Substance: TAMOXIFEN CITRATE
     Indication: BREAST CANCER
     Dates: start: 20170620
  2. TYLENOL [Concomitant]
     Active Substance: ACETAMINOPHEN
     Indication: UPPER RESPIRATORY TRACT INFECTION
     Dosage: 500 MG PRN
     Dates: start: 20180911, end: 20180911
  3. TYLENOL [Concomitant]
     Active Substance: ACETAMINOPHEN
     Indication: PYREXIA
     Dosage: 500 MG PRN
     Dates: start: 20180911, end: 20180911
  4. LYNPARZA [Suspect]
     Active Substance: OLAPARIB
     Indication: BREAST CANCER
     Route: 048
     Dates: start: 20170928, end: 20180907
  5. SINGULAIR [Concomitant]
     Active Substance: MONTELUKAST SODIUM
     Indication: UPPER RESPIRATORY TRACT INFECTION
     Dates: start: 20180901, end: 20180904
  6. SUSPEN [Concomitant]
     Indication: UPPER RESPIRATORY TRACT INFECTION
     Dates: start: 20180828, end: 20180904
  7. MEDILAC?DS [Concomitant]
     Indication: DYSPEPSIA
     Dates: start: 20180901, end: 20180904
  8. DENOGAN [Concomitant]
     Active Substance: PROPACETAMOL HYDROCHLORIDE
     Indication: UPPER RESPIRATORY TRACT INFECTION
     Dates: start: 20180901, end: 20180904
  9. AERIUS [Concomitant]
     Active Substance: DESLORATADINE
     Indication: UPPER RESPIRATORY TRACT INFECTION
     Dates: start: 20180901, end: 20180904
  10. TYLENOL [Concomitant]
     Active Substance: ACETAMINOPHEN
     Indication: UPPER RESPIRATORY TRACT INFECTION
     Dosage: 500 MG PRN
     Dates: start: 20180904, end: 20180904
  11. TYLENOL [Concomitant]
     Active Substance: ACETAMINOPHEN
     Indication: PYREXIA
     Dosage: 500 MG PRN
     Dates: start: 20180904, end: 20180904
  12. ZADAXIN [Concomitant]
     Active Substance: THYMALFASIN
     Indication: SUPPORTIVE CARE
     Dosage: 900 UG/M2
     Dates: start: 20180818
  13. AZEPTIN [Concomitant]
     Active Substance: AZELASTINE HYDROCHLORIDE
     Indication: UPPER RESPIRATORY TRACT INFECTION
     Dates: start: 20180828, end: 20180911

REACTIONS (2)
  - Anaemia [Recovering/Resolving]
  - Pneumonitis [Recovering/Resolving]

NARRATIVE: CASE EVENT DATE: 20180907
